FAERS Safety Report 26170764 (Version 1)
Quarter: 2025Q4

REPORT INFORMATION
  Report Type: Spontaneous
  Country: EU (occurrence: EU)
  Receive Date: 20251217
  Receipt Date: 20251217
  Transmission Date: 20260117
  Serious: Yes (Death, Other)
  Sender: BRISTOL-MYERS SQUIBB COMPANY
  Company Number: EU-DCGMA-25206349

PATIENT
  Age: 91 Year
  Sex: Male

DRUGS (1)
  1. ELIQUIS [Suspect]
     Active Substance: APIXABAN
     Indication: Atrial fibrillation
     Dosage: 5 MG 1-0-1
     Route: 048
     Dates: start: 202302

REACTIONS (3)
  - Cerebral haemorrhage [Fatal]
  - Intraventricular haemorrhage [Fatal]
  - Cerebral mass effect [Fatal]

NARRATIVE: CASE EVENT DATE: 20251108
